FAERS Safety Report 6200054-6 (Version None)
Quarter: 2009Q2

REPORT INFORMATION
  Report Type: 
  Country: None (occurrence: None)
  Receive Date: 20090522
  Receipt Date: 20081008
  Transmission Date: 20091009
  Serious: Yes (Hospitalization)
  Sender: FDA-Public Use
  Company Number: US-ALEXION-A200700068

PATIENT
  Sex: Male
  Weight: 125.17 kg

DRUGS (26)
  1. SOLIRIS [Suspect]
     Indication: PAROXYSMAL NOCTURNAL HAEMOGLOBINURIA
     Dosage: 600 MG, SINGLE
     Route: 042
     Dates: start: 20070509, end: 20070509
  2. SOLIRIS [Suspect]
     Dosage: 600 MG, SINGLE
     Route: 042
     Dates: start: 20070516, end: 20070516
  3. SOLIRIS [Suspect]
     Dosage: 600 MG, SINGLE
     Route: 042
     Dates: start: 20070523, end: 20070523
  4. SOLIRIS [Suspect]
     Dosage: 600 MG, SINGLE
     Route: 042
     Dates: start: 20070530, end: 20070530
  5. SOLIRIS [Suspect]
     Dosage: 900 MG, SINGLE
     Route: 042
     Dates: start: 20070606, end: 20070606
  6. SOLIRIS [Suspect]
     Dosage: 900 MG, SINGLE
     Route: 042
     Dates: start: 20070620, end: 20070620
  7. SOLIRIS [Suspect]
     Dosage: 900 MG, SINGLE
     Route: 042
     Dates: start: 20070704, end: 20070704
  8. SOLIRIS [Suspect]
     Dosage: 900 MG, SINGLE
     Route: 042
     Dates: start: 20070718, end: 20070718
  9. SOLIRIS [Suspect]
     Dosage: 900 MG, SINGLE
     Route: 042
     Dates: start: 20070808, end: 20070808
  10. SOLIRIS [Suspect]
     Dosage: 900 MG, SINGLE
     Route: 042
     Dates: start: 20070822, end: 20070822
  11. SOLIRIS [Suspect]
     Dosage: 900 MG, SINGLE
     Route: 042
     Dates: start: 20070905, end: 20070905
  12. SOLIRIS [Suspect]
     Dosage: 900 MG, SINGLE
     Route: 042
     Dates: start: 20070921, end: 20070921
  13. SOLIRIS [Suspect]
     Dosage: 900 MG, SINGLE
     Route: 042
     Dates: start: 20071005, end: 20071005
  14. SOLIRIS [Suspect]
     Dosage: 900 MG, SINGLE
     Route: 042
     Dates: start: 20071019, end: 20071019
  15. SOLIRIS [Suspect]
     Dosage: 900 MG, SINGLE
     Route: 042
     Dates: start: 20071105, end: 20071105
  16. SOLIRIS [Suspect]
     Dosage: 900 MG, SINGLE
     Route: 042
     Dates: start: 20071116, end: 20071116
  17. SOLIRIS [Suspect]
     Dosage: 900 MG, SINGLE
     Route: 042
     Dates: start: 20071130, end: 20071130
  18. SOLIRIS [Suspect]
     Dosage: 900 MG, SINGLE
     Route: 042
     Dates: start: 20071214, end: 20071214
  19. SOLIRIS [Suspect]
     Dosage: 900 MG, SINGLE
     Route: 042
     Dates: start: 20080102, end: 20080102
  20. SOLIRIS [Suspect]
     Dosage: 900 MG, SINGLE
     Route: 042
     Dates: start: 20080118, end: 20080118
  21. IRON THERAPY [Suspect]
  22. ZYRTEC [Concomitant]
     Dosage: UNK, QD
     Route: 048
  23. MUCINEX [Concomitant]
     Route: 048
  24. BENADRYL [Concomitant]
  25. GAS-X [Concomitant]
  26. TYLENOL (CAPLET) [Concomitant]

REACTIONS (33)
  - ABDOMINAL DISTENSION [None]
  - ASTHENIA [None]
  - BACK PAIN [None]
  - BLOOD LACTATE DEHYDROGENASE INCREASED [None]
  - BLOOD PRESSURE INCREASED [None]
  - BREATH ODOUR [None]
  - CHROMATURIA [None]
  - CONSTIPATION [None]
  - DEVICE FAILURE [None]
  - DIZZINESS [None]
  - DYSPNOEA [None]
  - FATIGUE [None]
  - FEELING HOT [None]
  - FLANK PAIN [None]
  - HAEMATURIA [None]
  - HAEMOLYSIS [None]
  - HYPERHIDROSIS [None]
  - INAPPROPRIATE SCHEDULE OF DRUG ADMINISTRATION [None]
  - INSOMNIA [None]
  - LETHARGY [None]
  - ORAL BACTERIAL INFECTION [None]
  - ORAL FUNGAL INFECTION [None]
  - PAIN [None]
  - PAIN IN EXTREMITY [None]
  - PARAESTHESIA [None]
  - PAROXYSMAL NOCTURNAL HAEMOGLOBINURIA [None]
  - PRODUCTIVE COUGH [None]
  - PROSTHESIS IMPLANTATION [None]
  - PYREXIA [None]
  - RENAL PAIN [None]
  - SCLERAL DISCOLOURATION [None]
  - SLEEP APNOEA SYNDROME [None]
  - WEIGHT INCREASED [None]
